FAERS Safety Report 14119821 (Version 1)
Quarter: 2017Q4

REPORT INFORMATION
  Report Type: Spontaneous
  Country: US (occurrence: US)
  Receive Date: 20171024
  Receipt Date: 20171024
  Transmission Date: 20180321
  Serious: Yes (Hospitalization, Other)
  Sender: FDA-Public Use
  Company Number: US-009507513-1710USA010256

PATIENT
  Age: 59 Year
  Sex: Female

DRUGS (24)
  1. VENCLEXTA [Suspect]
     Active Substance: VENETOCLAX
     Dosage: 200 MG ONCE DAILY
     Route: 048
     Dates: start: 20170623, end: 20170628
  2. GLOBULIN, IMMUNE [Concomitant]
     Active Substance: HUMAN IMMUNOGLOBULIN G
     Dosage: UNK
     Route: 042
  3. KLOR-CON [Concomitant]
     Active Substance: POTASSIUM CHLORIDE
     Dosage: 20 MEQ, ONCE DAILY, MIZED WITH WATER
     Route: 048
     Dates: start: 20170603, end: 20170623
  4. ALUDROX (ALUMINUM HYDROXIDE (+) MAGNESIUM HYDROXIDE) [Concomitant]
     Indication: BLOOD MAGNESIUM DECREASED
     Dosage: 2 TABLETS, ONCE DAILY
     Route: 048
     Dates: start: 2013
  5. BENADRYL [Concomitant]
     Active Substance: DIPHENHYDRAMINE HYDROCHLORIDE
     Indication: SLEEP DISORDER
     Dosage: 25 MG, AT BEDTIME
     Route: 048
     Dates: start: 201701
  6. DECADRON [Suspect]
     Active Substance: DEXAMETHASONE
     Indication: PROPHYLAXIS
  7. PREDNISONE. [Suspect]
     Active Substance: PREDNISONE
     Indication: PROPHYLAXIS
  8. VENCLEXTA [Suspect]
     Active Substance: VENETOCLAX
     Dosage: 300 MG ONCE DAILY
     Route: 048
     Dates: start: 20170701
  9. PHENAZOPYRIDINE HYDROCHLORIDE. [Suspect]
     Active Substance: PHENAZOPYRIDINE HYDROCHLORIDE
     Indication: URINARY TRACT INFECTION
     Dosage: UNK
     Dates: start: 20170811, end: 20170811
  10. VENCLEXTA [Suspect]
     Active Substance: VENETOCLAX
     Indication: CHRONIC LYMPHOCYTIC LEUKAEMIA
     Dosage: 20 MG ONCE DAILY
     Route: 048
     Dates: start: 20170603, end: 20170608
  11. VENCLEXTA [Suspect]
     Active Substance: VENETOCLAX
     Dosage: 100 MG ONCE DAILY
     Route: 048
     Dates: start: 20170616, end: 20170622
  12. VENCLEXTA [Suspect]
     Active Substance: VENETOCLAX
     Dosage: 400 MG ONCE DAILY
     Route: 048
     Dates: start: 20170629, end: 20170630
  13. GLOBULIN, IMMUNE [Concomitant]
     Active Substance: HUMAN IMMUNOGLOBULIN G
     Dosage: UNK
     Route: 042
     Dates: start: 201709
  14. ALLOPURINOL. [Concomitant]
     Active Substance: ALLOPURINOL
     Indication: RENAL DISORDER
     Dosage: 300 MG, ONCE DAILY
     Route: 048
     Dates: start: 20170529
  15. FLONASE [Concomitant]
     Active Substance: FLUTICASONE PROPIONATE
     Dosage: 2 SQUIRTS IN EACH NOSTRIL
     Route: 045
  16. LORAZEPAM. [Concomitant]
     Active Substance: LORAZEPAM
     Indication: SLEEP DISORDER
     Dosage: 2 MG AT BEDTIME
     Route: 048
     Dates: start: 2007
  17. DECADRON [Suspect]
     Active Substance: DEXAMETHASONE
     Indication: PROLYMPHOCYTIC LEUKAEMIA
     Dosage: UNK
     Route: 042
  18. METOPROLOL. [Concomitant]
     Active Substance: METOPROLOL
     Indication: BLOOD PRESSURE MEASUREMENT
     Dosage: 100 MG (2X50 MG) ONCE DAILY
     Route: 048
     Dates: end: 20170801
  19. BACTRIM [Concomitant]
     Active Substance: SULFAMETHOXAZOLE\TRIMETHOPRIM
     Indication: URINARY TRACT INFECTION
  20. CLARITIN [Concomitant]
     Active Substance: LORATADINE
     Indication: HYPERSENSITIVITY
     Dosage: 1 TABLET DAILY
     Route: 048
  21. PREDNISONE. [Suspect]
     Active Substance: PREDNISONE
     Indication: PROLYMPHOCYTIC LEUKAEMIA
     Dosage: 2 TABLETS IN ONE MONTH
     Route: 048
  22. VENCLEXTA [Suspect]
     Active Substance: VENETOCLAX
     Dosage: 50 MG ONCE DAILY
     Route: 048
     Dates: start: 20170609, end: 20170615
  23. ACYCLOVIR. [Concomitant]
     Active Substance: ACYCLOVIR
     Dosage: 800 MG (2X 400 MG), ONCE DAILY
     Route: 048
     Dates: start: 2010
  24. BACTRIM [Concomitant]
     Active Substance: SULFAMETHOXAZOLE\TRIMETHOPRIM
     Indication: INFECTION PROPHYLAXIS
     Dosage: 800 MG (2 TABLETS) DAILY
     Route: 048

REACTIONS (28)
  - Blood magnesium decreased [Unknown]
  - Platelet count decreased [Unknown]
  - Prolymphocytic leukaemia [Unknown]
  - Heart rate increased [Not Recovered/Not Resolved]
  - Hypervigilance [Unknown]
  - Candida infection [Unknown]
  - Drug hypersensitivity [Unknown]
  - Blood urea increased [Recovered/Resolved]
  - Insomnia [Not Recovered/Not Resolved]
  - Weight increased [Not Recovered/Not Resolved]
  - Leukopenia [Unknown]
  - Fatigue [Not Recovered/Not Resolved]
  - Hypoaesthesia oral [Unknown]
  - Nausea [Unknown]
  - Blood potassium increased [Unknown]
  - Blood creatinine decreased [Recovered/Resolved]
  - Body temperature increased [Not Recovered/Not Resolved]
  - Lip swelling [Recovered/Resolved]
  - Thrombocytopenia [Unknown]
  - Weight decreased [Unknown]
  - White blood cell count decreased [Recovering/Resolving]
  - Ageusia [Unknown]
  - Tremor [Unknown]
  - Dehydration [Unknown]
  - Decreased appetite [Recovering/Resolving]
  - Blood phosphorus increased [Unknown]
  - Urinary tract infection [Unknown]
  - Diarrhoea [Unknown]

NARRATIVE: CASE EVENT DATE: 2017
